FAERS Safety Report 6369061-7 (Version None)
Quarter: 2009Q3

REPORT INFORMATION
  Report Type: 
  Country: None (occurrence: None)
  Receive Date: 20090922
  Receipt Date: 20090911
  Transmission Date: 20100115
  Serious: Yes (Hospitalization, Other)
  Sender: FDA-Public Use
  Company Number: PHHY2009JP37579

PATIENT
  Age: 75 Year
  Sex: Female
  Weight: 43 kg

DRUGS (2)
  1. METOPROLOL TARTRATE [Suspect]
     Dosage: 40 MG
  2. METOPROLOL TARTRATE [Suspect]
     Dosage: UNK
     Dates: start: 20081201

REACTIONS (29)
  - ANGINA UNSTABLE [None]
  - ATRIAL TACHYCARDIA [None]
  - BLOOD PRESSURE DIASTOLIC DECREASED [None]
  - BLOOD PRESSURE INADEQUATELY CONTROLLED [None]
  - CARDIAC FAILURE CONGESTIVE [None]
  - CARDIAC MURMUR [None]
  - CARDIOMEGALY [None]
  - CHEST DISCOMFORT [None]
  - DIALYSIS [None]
  - DYSPNOEA [None]
  - ELECTROCARDIOGRAM POOR R-WAVE PROGRESSION [None]
  - ELECTROCARDIOGRAM ST SEGMENT DEPRESSION [None]
  - HEART RATE DECREASED [None]
  - HEART SOUNDS ABNORMAL [None]
  - HYPERGLYCAEMIA [None]
  - HYPERLIPIDAEMIA [None]
  - HYPERURICAEMIA [None]
  - LIVER PALPABLE SUBCOSTAL [None]
  - MITRAL VALVE INCOMPETENCE [None]
  - MYOCARDIAL ISCHAEMIA [None]
  - PAPILLARY MUSCLE DISORDER [None]
  - PLEURAL EFFUSION [None]
  - PRINZMETAL ANGINA [None]
  - PULMONARY CONGESTION [None]
  - RALES [None]
  - RENAL IMPAIRMENT [None]
  - SINUS TACHYCARDIA [None]
  - SUPRAVENTRICULAR EXTRASYSTOLES [None]
  - TROPONIN T INCREASED [None]
